FAERS Safety Report 5586806-4 (Version None)
Quarter: 2008Q1

REPORT INFORMATION
  Report Type: 
  Country: None (occurrence: None)
  Receive Date: 20080110
  Receipt Date: 20080103
  Transmission Date: 20080703
  Serious: Yes (Hospitalization)
  Sender: FDA-Public Use
  Company Number: GB-AMGEN-UK256259

PATIENT
  Sex: Male

DRUGS (10)
  1. PANITUMUMAB [Suspect]
     Indication: COLORECTAL CANCER
     Route: 042
     Dates: start: 20070726, end: 20071108
  2. OXALIPLATIN [Concomitant]
     Dates: end: 20071108
  3. LEUCOVORIN [Concomitant]
     Dates: end: 20071108
  4. FLUOROURACIL [Concomitant]
     Dates: end: 20071108
  5. POTASSIUM CHLORIDE [Concomitant]
     Route: 048
     Dates: start: 20071025, end: 20071031
  6. POTASSIUM CHLORIDE [Concomitant]
     Route: 048
     Dates: start: 20071203, end: 20071214
  7. MIL-PAR [Concomitant]
     Route: 048
  8. POTASSIUM CHLORIDE [Concomitant]
     Route: 042
     Dates: start: 20071202, end: 20071203
  9. SALINE MIXTURE [Concomitant]
     Route: 042
     Dates: start: 20071202, end: 20071203
  10. INFLUENZA VACCINE [Concomitant]
     Route: 030
     Dates: start: 20071107, end: 20071107

REACTIONS (1)
  - RECTAL HAEMORRHAGE [None]
